FAERS Safety Report 9088866 (Version 1)
Quarter: 2013Q1

REPORT INFORMATION
  Report Type: Spontaneous
  Country: US (occurrence: US)
  Receive Date: 20130201
  Receipt Date: 20130201
  Transmission Date: 20140127
  Serious: Yes (Other)
  Sender: FDA-Public Use
  Company Number: CHPA2013US001740

PATIENT
  Age: 74 Year
  Sex: Male

DRUGS (3)
  1. MAALOX ANTACID/ANTIGAS MAX LIQ [Suspect]
     Indication: FLATULENCE
     Dosage: UNK, UNK
     Route: 048
     Dates: end: 2012
  2. PEPTOBISMOL [Concomitant]
     Indication: FLATULENCE
     Route: 048
  3. MILK OF MAGNESIA [Concomitant]
     Indication: FLATULENCE
     Route: 048

REACTIONS (3)
  - Coeliac disease [Not Recovered/Not Resolved]
  - Cardiac murmur [Not Recovered/Not Resolved]
  - Heart rate irregular [Not Recovered/Not Resolved]
